FAERS Safety Report 10244739 (Version 4)
Quarter: 2014Q3

REPORT INFORMATION
  Report Type: Spontaneous
  Country: US (occurrence: None)
  Receive Date: 20140617
  Receipt Date: 20140828
  Transmission Date: 20150326
  Serious: Yes (Hospitalization, Other)
  Sender: FDA-Public Use
  Company Number: 2014CT000040

PATIENT
  Age: 43 Year
  Sex: Female
  Weight: 172.37 kg

DRUGS (7)
  1. METFORMIN [Concomitant]
     Active Substance: METFORMIN HYDROCHLORIDE
  2. KORLYM [Suspect]
     Active Substance: MIFEPRISTONE
     Indication: PITUITARY-DEPENDENT CUSHING^S SYNDROME
     Route: 048
     Dates: start: 201403
  3. LEVOTHYROXINE [Concomitant]
     Active Substance: LEVOTHYROXINE
  4. GLYBURIDE. [Concomitant]
     Active Substance: GLYBURIDE
  5. LOSARTAN [Concomitant]
     Active Substance: LOSARTAN
  6. LAMICTAL [Concomitant]
     Active Substance: LAMOTRIGINE
  7. CITALOPRAM [Concomitant]
     Active Substance: CITALOPRAM HYDROBROMIDE

REACTIONS (13)
  - Hepatic enzyme increased [None]
  - Blood potassium decreased [None]
  - Splenomegaly [None]
  - Decreased appetite [None]
  - Hepatomegaly [None]
  - Pulmonary oedema [None]
  - Family stress [None]
  - Fatigue [None]
  - Cardiomegaly [None]
  - Blood glucose increased [None]
  - Cardiac failure congestive [None]
  - Nausea [None]
  - Dizziness [None]

NARRATIVE: CASE EVENT DATE: 201403
